FAERS Safety Report 4830234-3 (Version None)
Quarter: 2005Q4

REPORT INFORMATION
  Report Type: 
  Country: None (occurrence: None)
  Receive Date: 20051117
  Receipt Date: 20050928
  Transmission Date: 20060501
  Serious: Yes (Other)
  Sender: FDA-Public Use
  Company Number: CL-GLAXOSMITHKLINE-A0576578A

PATIENT
  Age: 36 Year
  Sex: Female

DRUGS (4)
  1. AROXAT [Suspect]
     Indication: BIPOLAR DISORDER
     Dosage: 25MG AT NIGHT
     Route: 048
     Dates: start: 20050401
  2. LAMICTAL [Concomitant]
     Indication: BIPOLAR DISORDER
     Dosage: 200MG PER DAY
     Route: 048
     Dates: start: 20050401
  3. WELLBUTRIN SR [Concomitant]
     Indication: BIPOLAR DISORDER
     Dosage: 150MG TWICE PER DAY
     Dates: start: 20050601
  4. SEROQUEL [Concomitant]
     Indication: SLEEP DISORDER
     Route: 048
     Dates: start: 20050801

REACTIONS (2)
  - GLAUCOMA [None]
  - UVEITIS [None]
